FAERS Safety Report 17101875 (Version 1)
Quarter: 2019Q4

REPORT INFORMATION
  Report Type: Spontaneous
  Country: FR (occurrence: FR)
  Receive Date: 20191202
  Receipt Date: 20191202
  Transmission Date: 20200122
  Serious: Yes (Life-Threatening)
  Sender: FDA-Public Use
  Company Number: FR-PFIZER INC-2019514960

PATIENT
  Age: 62 Year
  Sex: Male
  Weight: 64 kg

DRUGS (10)
  1. METFORMIN [Concomitant]
     Active Substance: METFORMIN HYDROCHLORIDE
  2. ATENOLOL. [Concomitant]
     Active Substance: ATENOLOL
  3. CEFAZOLIN [Concomitant]
     Active Substance: CEFAZOLIN
  4. LERCANIDIPINE HYDROCHLORIDE [Concomitant]
     Active Substance: LERCANIDIPINE HYDROCHLORIDE
  5. EUPANTOL [Concomitant]
     Active Substance: PANTOPRAZOLE SODIUM
  6. ESIDREX [Concomitant]
     Active Substance: HYDROCHLOROTHIAZIDE
  7. LISINOPRIL DIHYDRATE [Concomitant]
     Active Substance: LISINOPRIL
  8. FRAGMINE [Suspect]
     Active Substance: DALTEPARIN SODIUM
     Indication: ANTICOAGULANT THERAPY
     Dosage: 5000 IU, 1X/DAY
     Route: 058
     Dates: start: 20190912, end: 20190922
  9. XARELTO [Suspect]
     Active Substance: RIVAROXABAN
     Indication: ATRIAL FIBRILLATION
     Dosage: 1 DF, 1X/DAY
     Route: 048
     Dates: end: 20190911
  10. AMIODARONE [Concomitant]
     Active Substance: AMIODARONE

REACTIONS (3)
  - Haematoma [Recovering/Resolving]
  - Respiratory distress [Recovered/Resolved]
  - Post procedural haematoma [Recovered/Resolved with Sequelae]

NARRATIVE: CASE EVENT DATE: 20190912
